FAERS Safety Report 5360675-X (Version None)
Quarter: 2007Q2

REPORT INFORMATION
  Report Type: 
  Country: None (occurrence: None)
  Receive Date: 20070618
  Receipt Date: 20070608
  Transmission Date: 20071010
  Serious: Yes (Other)
  Sender: FDA-Public Use
  Company Number: MX-ROCHE-500288

PATIENT
  Age: 48 Year
  Sex: Female
  Weight: 38 kg

DRUGS (4)
  1. PEGASYS [Suspect]
     Indication: HEPATITIS C
     Route: 058
     Dates: start: 20030301
  2. PEGASYS [Suspect]
     Dosage: REDUCED DOSE
     Route: 058
     Dates: start: 20030601, end: 20060301
  3. PEGTRON [Suspect]
     Indication: HEPATITIS C
     Route: 058
     Dates: start: 20060401, end: 20070101
  4. LEVOTHYROXINE SODIUM [Suspect]
     Indication: HYPOTHYROIDISM
     Dosage: DRUG REPORTED AS LEVOTIROXIN. DOSAGE REGIMEN: DAILY.
     Route: 048
     Dates: start: 19870101

REACTIONS (5)
  - ALOPECIA [None]
  - BLISTER [None]
  - HEADACHE [None]
  - PYREXIA [None]
  - VOMITING [None]
